FAERS Safety Report 20099777 (Version 2)
Quarter: 2022Q1

REPORT INFORMATION
  Report Type: Spontaneous
  Country: PL (occurrence: PL)
  Receive Date: 20211123
  Receipt Date: 20220222
  Transmission Date: 20220423
  Serious: Yes (Hospitalization, Other)
  Sender: FDA-Public Use
  Company Number: PL-ROCHE-2802780

PATIENT
  Age: 46 Year
  Sex: Male

DRUGS (14)
  1. ATORVASTATIN [Suspect]
     Active Substance: ATORVASTATIN
     Indication: Cardiac failure chronic
     Dosage: 1 DOSAGE FORM, ONCE A DAY
     Route: 065
  2. IVABRADINE [Suspect]
     Active Substance: IVABRADINE
     Indication: Cardiac failure chronic
     Dosage: 1 DOSAGE FORM, ONCE A DAY
     Route: 065
  3. IVABRADINE [Suspect]
     Active Substance: IVABRADINE
     Dosage: 5 DOSAGE FORM, TWO TIMES A DAY
     Route: 065
  4. ROSUVASTATIN [Suspect]
     Active Substance: ROSUVASTATIN
     Indication: Cardiac failure chronic
     Dosage: 1 DOSAGE FORM, ONCE A DAY
     Route: 065
  5. RAMIPRIL [Suspect]
     Active Substance: RAMIPRIL
     Indication: Cardiac failure chronic
     Dosage: 1 DOSAGE FORM, ONCE A DAY
     Route: 065
  6. ASPIRIN [Suspect]
     Active Substance: ASPIRIN
     Indication: Cardiac failure chronic
     Dosage: 1 DOSAGE FORM, ONCE A DAY
     Route: 065
  7. COREG [Suspect]
     Active Substance: CARVEDILOL
     Indication: Cardiac failure chronic
     Dosage: 2 DOSAGE FORM, ONCE A DAY
     Route: 065
  8. COREG [Suspect]
     Active Substance: CARVEDILOL
     Dosage: 1 DOSAGE FORM, TWO TIMES A DAY
     Route: 065
  9. EPLERENONE [Suspect]
     Active Substance: EPLERENONE
     Indication: Cardiac failure chronic
     Dosage: 1 DOSAGE FORM, ONCE A DAY
     Route: 065
  10. ENTRESTO [Suspect]
     Active Substance: SACUBITRIL\VALSARTAN
     Indication: Cardiac failure chronic
     Dosage: 2 DOSAGE FORM 92 DF (OF 24/26MG))
     Route: 065
  11. ENTRESTO [Suspect]
     Active Substance: SACUBITRIL\VALSARTAN
     Dosage: UNK
     Route: 065
  12. ENTRESTO [Suspect]
     Active Substance: SACUBITRIL\VALSARTAN
     Dosage: 1 DOSAGE FORM, TWO TIMES A DAY (1 DF, Q12H; UNKNOWN)
     Route: 065
  13. ENTRESTO [Suspect]
     Active Substance: SACUBITRIL\VALSARTAN
     Dosage: 2 DOSAGE FORM 92 DF,(OF 49/51MG) )
     Route: 065
     Dates: start: 20191128
  14. TORSEMIDE [Suspect]
     Active Substance: TORSEMIDE
     Indication: Cardiac failure chronic
     Dosage: 20 MILLIGRAM, ONCE A DAY
     Route: 065

REACTIONS (7)
  - Electrocardiogram abnormal [Unknown]
  - Cardiac failure [Recovered/Resolved]
  - Bradycardia [Unknown]
  - Computerised tomogram coronary artery abnormal [Unknown]
  - Feeling abnormal [Unknown]
  - Hypotension [Unknown]
  - Overdose [Unknown]

NARRATIVE: CASE EVENT DATE: 20190522
